FAERS Safety Report 6836023-2 (Version None)
Quarter: 2010Q3

REPORT INFORMATION
  Report Type: 
  Country: None (occurrence: None)
  Receive Date: 20100713
  Receipt Date: 20100706
  Transmission Date: 20110219
  Serious: Yes (Hospitalization)
  Sender: FDA-Public Use
  Company Number: A0869801A

PATIENT
  Age: 70 Year
  Sex: Female

DRUGS (2)
  1. REQUIP [Suspect]
     Indication: PRODUCT USED FOR UNKNOWN INDICATION
     Dosage: 5MG UNKNOWN
     Route: 048
     Dates: start: 20100409, end: 20100607
  2. CONCURRENT MEDICATIONS [Concomitant]

REACTIONS (1)
  - ADVERSE EVENT [None]
